FAERS Safety Report 20623991 (Version 2)
Quarter: 2022Q2

REPORT INFORMATION
  Report Type: Report from Study
  Country: CH (occurrence: None)
  Receive Date: 20220322
  Receipt Date: 20220420
  Transmission Date: 20220721
  Serious: Yes (Hospitalization)
  Sender: FDA-Public Use
  Company Number: CH-ROCHE-3053426

PATIENT
  Age: 72 Year
  Sex: Female
  Weight: 53.9 kg

DRUGS (10)
  1. ATEZOLIZUMAB [Suspect]
     Active Substance: ATEZOLIZUMAB
     Indication: Pleural mesothelioma malignant
     Dosage: MOST RECENT DOSE OF ATEZOLIZUMAB PRIOR TO EVENT DYSPHAGIA: 02/MAR/2022?ON DAY 1 EVERY THREE WEEKS
     Route: 041
     Dates: start: 20220209
  2. BEVACIZUMAB [Suspect]
     Active Substance: BEVACIZUMAB
     Indication: Pleural mesothelioma malignant
     Dosage: 400 MG/16 ML, ON DAY 1 EVERY THREE WEEKS?MOST RECENT DOSE OF BEVACIZUM02/MAR/2022AB PRIOR TO EVENT D
     Route: 042
     Dates: start: 20220209
  3. CARBOPLATIN [Suspect]
     Active Substance: CARBOPLATIN
     Indication: Pleural mesothelioma malignant
     Dosage: AUC, DAY ONE, ONCE IN THREE WEEKS PLUS 4 TO 6 CYCLES?DATE OF LAST CARBOPLATIN ADMINISTRATION BEFORE
     Route: 042
     Dates: start: 20220209
  4. PEMETREXED [Suspect]
     Active Substance: PEMETREXED
     Indication: Pleural mesothelioma malignant
     Dosage: DATE OF LAST PEMETREXED ADMINISTRATION BEFORE EVENT DYSPHAGIA: 02/MAR/2022
     Route: 042
     Dates: start: 20220209
  5. SODIUM CHLORIDE [Concomitant]
     Active Substance: SODIUM CHLORIDE
  6. PANTOPRAZOLE [Concomitant]
     Active Substance: PANTOPRAZOLE
  7. ONDANSETRON [Concomitant]
     Active Substance: ONDANSETRON
  8. LEVOMEPROMAZINE [Concomitant]
     Active Substance: LEVOMEPROMAZINE
  9. DOMPERIDONE [Concomitant]
     Active Substance: DOMPERIDONE
  10. LANSOPRAZOLE [Concomitant]
     Active Substance: LANSOPRAZOLE

REACTIONS (1)
  - Dysphagia [Recovered/Resolved]

NARRATIVE: CASE EVENT DATE: 20220310
